FAERS Safety Report 9830819 (Version 1)
Quarter: 2014Q1

REPORT INFORMATION
  Report Type: Report from Study
  Country: US (occurrence: US)
  Receive Date: 20140120
  Receipt Date: 20140120
  Transmission Date: 20141002
  Serious: Yes (Hospitalization)
  Sender: FDA-Public Use
  Company Number: US-ABBVIE-14P-163-1188467-00

PATIENT
  Age: 33 Year
  Sex: Female

DRUGS (4)
  1. HUMIRA [Suspect]
     Indication: CROHN^S DISEASE
     Dates: start: 20130523, end: 20131225
  2. TYLENOL [Concomitant]
     Indication: PAIN
  3. TYLENOL [Concomitant]
     Indication: PYREXIA
  4. VITAMIN D [Concomitant]
     Indication: PRODUCT USED FOR UNKNOWN INDICATION

REACTIONS (11)
  - Colitis ulcerative [Recovering/Resolving]
  - Haematochezia [Recovering/Resolving]
  - Abdominal pain [Recovering/Resolving]
  - Abdominal pain [Recovering/Resolving]
  - Abscess limb [Recovering/Resolving]
  - Abscess oral [Recovering/Resolving]
  - Staphylococcal infection [Recovering/Resolving]
  - Abscess limb [Recovering/Resolving]
  - Blood iron decreased [Recovering/Resolving]
  - Rectal haemorrhage [Not Recovered/Not Resolved]
  - Nausea [Recovered/Resolved]
